FAERS Safety Report 4560666-2 (Version None)
Quarter: 2005Q1

REPORT INFORMATION
  Report Type: 
  Country: None (occurrence: None)
  Receive Date: 20050124
  Receipt Date: 20050124
  Transmission Date: 20050727
  Serious: Yes (Other)
  Sender: FDA-Public Use
  Company Number: None

PATIENT
  Sex: Male
  Weight: 2.4948 kg

DRUGS (1)
  1. AMPICILLIN [Suspect]
     Indication: BACTERIAL INFECTION
     Dosage: 120 MG EVERY 6 HOURS INTRAVENOUS
     Route: 042
     Dates: start: 20050115, end: 20050117

REACTIONS (1)
  - MEDICATION ERROR [None]
